FAERS Safety Report 7957020-X (Version None)
Quarter: 2011Q4

REPORT INFORMATION
  Report Type: 
  Country: None (occurrence: None)
  Receive Date: 20111205
  Receipt Date: 20111205
  Transmission Date: 20120403
  Serious: No
  Sender: FDA-Public Use
  Company Number: None

PATIENT
  Sex: Female
  Weight: 95.254 kg

DRUGS (1)
  1. WET SKIN SUN SCREEN AEROSOL [Suspect]
     Indication: PROPHYLAXIS AGAINST SOLAR RADIATION
     Dosage: APPLIED OVER ENTIRE EXPOSED SK
     Route: 061
     Dates: start: 20110906, end: 20110906

REACTIONS (5)
  - SUNBURN [None]
  - RASH MACULAR [None]
  - SKIN DISCOLOURATION [None]
  - CHEMICAL INJURY [None]
  - CAPILLARY DISORDER [None]
